FAERS Safety Report 14457339 (Version 1)
Quarter: 2018Q1

REPORT INFORMATION
  Report Type: Spontaneous
  Country: RU (occurrence: RU)
  Receive Date: 20180130
  Receipt Date: 20180130
  Transmission Date: 20180509
  Serious: Yes (Hospitalization, Other)
  Sender: FDA-Public Use
  Company Number: RU-ASTRAZENECA-2018SE10996

PATIENT
  Age: 46 Year
  Sex: Female
  Weight: 90 kg

DRUGS (4)
  1. THROMBO ASS [Concomitant]
     Active Substance: ASPIRIN
  2. BRILINTA [Suspect]
     Active Substance: TICAGRELOR
     Indication: MYOCARDIAL INFARCTION
     Route: 048
     Dates: start: 20160101, end: 20170601
  3. CONCOR [Concomitant]
     Active Substance: BISOPROLOL FUMARATE
  4. BIDOP [Concomitant]

REACTIONS (4)
  - Intentional product misuse [Unknown]
  - Off label use [Unknown]
  - Product prescribing issue [Unknown]
  - Myocardial infarction [Unknown]

NARRATIVE: CASE EVENT DATE: 20161029
